FAERS Safety Report 22382355 (Version 1)
Quarter: 2023Q2

REPORT INFORMATION
  Report Type: Spontaneous
  Country: US (occurrence: None)
  Receive Date: 20230526
  Receipt Date: 20230526
  Transmission Date: 20230722
  Serious: Yes (Hospitalization)
  Sender: FDA-Public Use
  Company Number: None

PATIENT
  Sex: Male

DRUGS (5)
  1. ABIRATERONE ACETATE [Suspect]
     Active Substance: ABIRATERONE ACETATE
     Dosage: OTHER QUANTITY : 4T;?FREQUENCY : DAILY;?
     Route: 048
  2. XTANDI [Concomitant]
     Active Substance: ENZALUTAMIDE
  3. IBUPROFEN [Concomitant]
     Active Substance: IBUPROFEN
  4. PREDNISONE [Concomitant]
     Active Substance: PREDNISONE
  5. LUPRON [Concomitant]
     Active Substance: LEUPROLIDE ACETATE

REACTIONS (2)
  - Hospitalisation [None]
  - Therapy interrupted [None]
